FAERS Safety Report 5132634-3 (Version None)
Quarter: 2006Q4

REPORT INFORMATION
  Report Type: 
  Country: None (occurrence: None)
  Receive Date: 20061023
  Receipt Date: 20061017
  Transmission Date: 20070319
  Serious: Yes (Hospitalization)
  Sender: FDA-Public Use
  Company Number: SE-GLAXOSMITHKLINE-B0442437A

PATIENT
  Age: 68 Year
  Sex: Female

DRUGS (3)
  1. ACETAMINOPHEN [Suspect]
     Route: 048
  2. SERTRALINE [Suspect]
     Route: 048
  3. ANTABUSE [Suspect]
     Route: 048
     Dates: start: 20060815, end: 20060825

REACTIONS (4)
  - ABDOMINAL PAIN [None]
  - HEPATITIS [None]
  - MALAISE [None]
  - VOMITING [None]
